FAERS Safety Report 6742852-6 (Version None)
Quarter: 2010Q2

REPORT INFORMATION
  Report Type: 
  Country: None (occurrence: None)
  Receive Date: 20100525
  Receipt Date: 20100510
  Transmission Date: 20101027
  Serious: Yes (Death)
  Sender: FDA-Public Use
  Company Number: AE 2010-082

PATIENT
  Age: 65 Year
  Sex: Female

DRUGS (3)
  1. FAZACLO ODT [Suspect]
     Indication: SCHIZOAFFECTIVE DISORDER
     Dosage: 225MG DAILY PO
     Route: 048
     Dates: start: 20090928, end: 20100306
  2. COGENTIN [Concomitant]
  3. LOXITANE [Concomitant]

REACTIONS (3)
  - ASPIRATION [None]
  - DYSPHAGIA [None]
  - MUSCULAR WEAKNESS [None]
